FAERS Safety Report 14644890 (Version 1)
Quarter: 2018Q1

REPORT INFORMATION
  Report Type: Spontaneous
  Country: US (occurrence: US)
  Receive Date: 20180315
  Receipt Date: 20180315
  Transmission Date: 20180509
  Serious: Yes (Hospitalization, Other)
  Sender: FDA-Public Use
  Company Number: US-BAUSCH-BL-2018-006634

PATIENT
  Age: 75 Year
  Sex: Male

DRUGS (10)
  1. PARITAPREVIR [Suspect]
     Active Substance: PARITAPREVIR
     Indication: HEPATIC CIRRHOSIS
  2. RIBAVIRIN. [Suspect]
     Active Substance: RIBAVIRIN
     Indication: CHRONIC HEPATITIS C
     Route: 065
  3. PARITAPREVIR [Suspect]
     Active Substance: PARITAPREVIR
     Indication: CHRONIC HEPATITIS C
     Route: 065
  4. OMBITASVIR [Suspect]
     Active Substance: OMBITASVIR
     Indication: CHRONIC HEPATITIS C
     Route: 065
  5. DASABUVIR [Suspect]
     Active Substance: DASABUVIR
     Indication: CHRONIC HEPATITIS C
     Route: 065
  6. DASABUVIR [Suspect]
     Active Substance: DASABUVIR
     Indication: HEPATIC CIRRHOSIS
  7. OMBITASVIR [Suspect]
     Active Substance: OMBITASVIR
     Indication: HEPATIC CIRRHOSIS
  8. RITONAVIR. [Suspect]
     Active Substance: RITONAVIR
     Indication: HEPATIC CIRRHOSIS
  9. RIBAVIRIN. [Suspect]
     Active Substance: RIBAVIRIN
     Indication: HEPATIC CIRRHOSIS
  10. RITONAVIR. [Suspect]
     Active Substance: RITONAVIR
     Indication: CHRONIC HEPATITIS C
     Route: 065

REACTIONS (2)
  - Hepatotoxicity [Recovered/Resolved]
  - Liver injury [Recovered/Resolved]
